FAERS Safety Report 9110317 (Version 1)
Quarter: 2013Q1

REPORT INFORMATION
  Report Type: Report from Study
  Country: CA (occurrence: CA)
  Receive Date: 20130222
  Receipt Date: 20130222
  Transmission Date: 20140127
  Serious: Yes (Other)
  Sender: FDA-Public Use
  Company Number: CA-PFIZER INC-2013060262

PATIENT
  Sex: 0

DRUGS (2)
  1. SIROLIMUS [Suspect]
     Dosage: UNKNOWN DOSE; DAILY
     Route: 048
  2. VINBLASTINE [Concomitant]
     Dosage: 6 MG/M2, CYCLIC
     Route: 042

REACTIONS (1)
  - Cholecystitis acute [Unknown]
